FAERS Safety Report 10181996 (Version 1)
Quarter: 2014Q2

REPORT INFORMATION
  Report Type: Spontaneous
  Country: US (occurrence: US)
  Receive Date: 20140519
  Receipt Date: 20140519
  Transmission Date: 20141212
  Serious: No
  Sender: FDA-Public Use
  Company Number: US-GILEAD-2014-0102704

PATIENT
  Age: 71 Year
  Sex: Male

DRUGS (4)
  1. RANEXA [Suspect]
     Indication: PRODUCT USED FOR UNKNOWN INDICATION
     Route: 065
  2. PLACID                             /00706001/ [Concomitant]
  3. ASPIRIN [Concomitant]
  4. IMDUR [Concomitant]

REACTIONS (1)
  - Cough [Recovered/Resolved]
